APPROVED DRUG PRODUCT: SURFAXIN
Active Ingredient: LUCINACTANT
Strength: 8.5ML
Dosage Form/Route: SUSPENSION;INTRATRACHEAL
Application: N021746 | Product #001
Applicant: LEES PHARMACEUTICAL HK LTD
Approved: Mar 6, 2012 | RLD: No | RS: No | Type: DISCN